FAERS Safety Report 6596086-9 (Version None)
Quarter: 2010Q1

REPORT INFORMATION
  Report Type: 
  Country: None (occurrence: None)
  Receive Date: 20100204
  Receipt Date: 20091008
  Transmission Date: 20100710
  Serious: No
  Sender: FDA-Public Use
  Company Number: 2009-08540

PATIENT
  Age: 77 Year
  Sex: Male

DRUGS (1)
  1. RAPAFLO [Suspect]
     Indication: POLLAKIURIA
     Dosage: 1 CAPSUL, SINGLE, ORAL
     Route: 048
     Dates: start: 20091007

REACTIONS (1)
  - NASAL CONGESTION [None]
